FAERS Safety Report 11754774 (Version 2)
Quarter: 2015Q4

REPORT INFORMATION
  Report Type: Other
  Country: US (occurrence: US)
  Receive Date: 20151119
  Receipt Date: 20151120
  Transmission Date: 20160304
  Serious: Yes (Hospitalization)
  Sender: FDA-Public Use
  Company Number: US-ETHYPHARM USA CORP-EY-BP-US-2015-002

PATIENT
  Sex: Male

DRUGS (2)
  1. SUBUTEX [Suspect]
     Active Substance: BUPRENORPHINE HYDROCHLORIDE
     Indication: PRODUCT USED FOR UNKNOWN INDICATION
     Route: 065
  2. HYDROCODONE [Suspect]
     Active Substance: HYDROCODONE
     Indication: PRODUCT USED FOR UNKNOWN INDICATION
     Route: 065

REACTIONS (3)
  - Drug withdrawal syndrome neonatal [None]
  - Foetal exposure during pregnancy [None]
  - Maternal drugs affecting foetus [None]

NARRATIVE: CASE EVENT DATE: 2014
